FAERS Safety Report 7822665-4 (Version None)
Quarter: 2011Q4

REPORT INFORMATION
  Report Type: 
  Country: None (occurrence: None)
  Receive Date: 20111018
  Receipt Date: 20111010
  Transmission Date: 20120403
  Serious: Yes (Other)
  Sender: FDA-Public Use
  Company Number: US-ASTRAZENECA-2011SE14990

PATIENT
  Age: 60 Year
  Sex: Female

DRUGS (1)
  1. NEXIUM [Suspect]
     Route: 048

REACTIONS (7)
  - INTRACRANIAL ANEURYSM [None]
  - OVARIAN CANCER [None]
  - GASTROOESOPHAGEAL REFLUX DISEASE [None]
  - ROAD TRAFFIC ACCIDENT [None]
  - GRAND MAL CONVULSION [None]
  - THROAT TIGHTNESS [None]
  - INTENTIONAL DRUG MISUSE [None]
